FAERS Safety Report 5907368-5 (Version None)
Quarter: 2008Q4

REPORT INFORMATION
  Report Type: 
  Country: None (occurrence: None)
  Receive Date: 20081003
  Receipt Date: 20080922
  Transmission Date: 20090506
  Serious: Yes (Hospitalization)
  Sender: FDA-Public Use
  Company Number: FR-ELI_LILLY_AND_COMPANY-FR200809005060

PATIENT
  Age: 76 Year
  Sex: Female

DRUGS (3)
  1. FORTEO [Suspect]
     Indication: OSTEOPOROSIS
     Dosage: 20 UG, DAILY (1/D)
     Route: 065
     Dates: start: 20070406
  2. FLECAINE [Concomitant]
     Dosage: 100 MG, DAILY (1/D)
     Route: 065
  3. CORTANCYL [Concomitant]
     Dosage: 5 MG, DAILY (1/D)
     Route: 065

REACTIONS (1)
  - COLONIC POLYP [None]
